FAERS Safety Report 20703887 (Version 1)
Quarter: 2022Q2

REPORT INFORMATION
  Report Type: Spontaneous
  Country: FR (occurrence: FR)
  Receive Date: 20220413
  Receipt Date: 20220413
  Transmission Date: 20220721
  Serious: Yes (Hospitalization, Other)
  Sender: FDA-Public Use
  Company Number: FR-AFSSAPS-TO20221584

PATIENT
  Age: 90 Year
  Sex: Female
  Weight: 55 kg

DRUGS (2)
  1. PAROXETINE [Suspect]
     Active Substance: PAROXETINE
     Indication: Depression
     Dosage: 20 MILLIGRAM, ONCE A DAY (LC)
     Route: 048
  2. ELIQUIS [Suspect]
     Active Substance: APIXABAN
     Indication: Atrial fibrillation
     Dosage: 5 MILLIGRAM, ONCE A DAY (LC)
     Route: 048
     Dates: end: 20220226

REACTIONS (3)
  - Melaena [Recovered/Resolved]
  - Gastrointestinal haemorrhage [Recovered/Resolved]
  - Anaemia [Recovering/Resolving]

NARRATIVE: CASE EVENT DATE: 20220206
